FAERS Safety Report 19723111 (Version 1)
Quarter: 2021Q3

REPORT INFORMATION
  Report Type: Spontaneous
  Country: DE (occurrence: DE)
  Receive Date: 20210820
  Receipt Date: 20210820
  Transmission Date: 20211014
  Serious: Yes (Death, Other)
  Sender: FDA-Public Use
  Company Number: DE-AUROBINDO-AUR-APL-2011-05722

PATIENT
  Age: 26 Year
  Sex: Female

DRUGS (1)
  1. MIRTAZAPINE AUROBINDO ORODISPERSIBLE TABLETS 15 MG [Suspect]
     Active Substance: MIRTAZAPINE
     Indication: DEPRESSED MOOD
     Dosage: 15 MILLIGRAM, ONCE A DAY
     Route: 048
     Dates: start: 20100930, end: 20101009

REACTIONS (1)
  - Completed suicide [Fatal]

NARRATIVE: CASE EVENT DATE: 20101009
